FAERS Safety Report 6999600-4 (Version None)
Quarter: 2010Q3

REPORT INFORMATION
  Report Type: 
  Country: None (occurrence: None)
  Receive Date: 20100920
  Receipt Date: 20100715
  Transmission Date: 20110219
  Serious: No
  Sender: FDA-Public Use
  Company Number: US-ASTRAZENECA-2010SE33055

PATIENT
  Age: 41 Year
  Sex: Male
  Weight: 136.1 kg

DRUGS (9)
  1. SEROQUEL [Suspect]
     Indication: DEPRESSION
     Route: 048
     Dates: start: 20090701, end: 20090901
  2. SEROQUEL [Suspect]
     Indication: INSOMNIA
     Route: 048
     Dates: start: 20090701, end: 20090901
  3. SEROQUEL [Suspect]
     Route: 048
     Dates: start: 20090901, end: 20091101
  4. SEROQUEL [Suspect]
     Route: 048
     Dates: start: 20090901, end: 20091101
  5. SEROQUEL [Suspect]
     Route: 048
     Dates: start: 20091101
  6. SEROQUEL [Suspect]
     Route: 048
     Dates: start: 20091101
  7. MUSCULAR RELAXANTS [Concomitant]
  8. BLOOD PRESSURE MEDS [Concomitant]
  9. BENADYRL [Concomitant]

REACTIONS (5)
  - DEPRESSION [None]
  - DRUG INEFFECTIVE [None]
  - INSOMNIA [None]
  - SLEEP DISORDER [None]
  - THERAPEUTIC PRODUCT INEFFECTIVE FOR UNAPPROVED INDICATION [None]
